FAERS Safety Report 7438482-3 (Version None)
Quarter: 2011Q2

REPORT INFORMATION
  Report Type: 
  Country: None (occurrence: None)
  Receive Date: 20110426
  Receipt Date: 20110419
  Transmission Date: 20111010
  Serious: Yes (Other)
  Sender: FDA-Public Use
  Company Number: US-PFIZER INC-2011086508

PATIENT
  Sex: Female
  Weight: 51.701 kg

DRUGS (2)
  1. IBUPROFEN (ADVIL) [Suspect]
     Indication: HEADACHE
  2. IBUPROFEN (ADVIL) [Suspect]
     Indication: PYREXIA
     Dosage: 200 MG, 2X/DAY
     Route: 048
     Dates: start: 20010101

REACTIONS (5)
  - BLISTER [None]
  - LIP SWELLING [None]
  - SWELLING FACE [None]
  - HYPERSENSITIVITY [None]
  - OROPHARYNGEAL BLISTERING [None]
